FAERS Safety Report 24039010 (Version 2)
Quarter: 2024Q3

REPORT INFORMATION
  Report Type: Other
  Country: BR (occurrence: BR)
  Receive Date: 20240702
  Receipt Date: 20240718
  Transmission Date: 20241016
  Serious: No
  Sender: TOLMAR
  Company Number: BR-TOLMAR, INC.-24BR050365

PATIENT
  Sex: Female

DRUGS (2)
  1. ELIGARD [Suspect]
     Active Substance: LEUPROLIDE ACETATE
     Indication: Precocious puberty
     Dosage: 45 MILLIGRAM, Q 6 MONTH
  2. ELIGARD [Suspect]
     Active Substance: LEUPROLIDE ACETATE
     Indication: Precocious puberty
     Dosage: UNK

REACTIONS (1)
  - Anxiety [Unknown]
